FAERS Safety Report 6282153-6 (Version None)
Quarter: 2009Q3

REPORT INFORMATION
  Report Type: 
  Country: None (occurrence: None)
  Receive Date: 20090721
  Receipt Date: 20090721
  Transmission Date: 20100115
  Serious: No
  Sender: FDA-Public Use
  Company Number: None

PATIENT
  Sex: Female

DRUGS (6)
  1. FENTANYL CITRATE [Suspect]
     Indication: PAIN
     Dosage: 100 MCG ONCE INTRAVENOUS BOLUS
     Route: 040
     Dates: start: 20090530
  2. NEURONTIN [Concomitant]
  3. SEROQUEL [Concomitant]
  4. LEXAPRO [Concomitant]
  5. ZOFRAN [Concomitant]
  6. PHENERGAN [Concomitant]

REACTIONS (3)
  - CARDIO-RESPIRATORY ARREST [None]
  - OXYGEN SATURATION DECREASED [None]
  - UNRESPONSIVE TO STIMULI [None]
